FAERS Safety Report 9504725 (Version 1)
Quarter: 2013Q3

REPORT INFORMATION
  Report Type: Spontaneous
  Country: US (occurrence: US)
  Receive Date: 20130906
  Receipt Date: 20130906
  Transmission Date: 20140515
  Serious: Yes (Other)
  Sender: FDA-Public Use
  Company Number: US-ELI_LILLY_AND_COMPANY-US201308010003

PATIENT
  Sex: Female

DRUGS (2)
  1. HUMALOG LISPRO [Suspect]
     Indication: DIABETES MELLITUS
     Dosage: 16 U, TID
     Dates: start: 201307
  2. LANTUS [Concomitant]
     Dosage: UNK, EACH EVENING

REACTIONS (4)
  - Cardiac disorder [Unknown]
  - Blood glucose increased [Unknown]
  - Stress [Unknown]
  - Visual impairment [Unknown]
